FAERS Safety Report 24189481 (Version 1)
Quarter: 2024Q3

REPORT INFORMATION
  Report Type: Spontaneous
  Country: US (occurrence: None)
  Receive Date: 20240807
  Receipt Date: 20240807
  Transmission Date: 20241016
  Serious: Yes (Hospitalization)
  Sender: Public
  Company Number: None

PATIENT
  Sex: Female

DRUGS (3)
  1. OPSUMIT [Suspect]
     Active Substance: MACITENTAN
     Indication: Pulmonary arterial hypertension
     Dosage: 10MG DAILY ORAL
     Route: 048
     Dates: start: 201611
  2. DEFERASIROX [Concomitant]
     Active Substance: DEFERASIROX
  3. REMODULIN [Concomitant]

REACTIONS (2)
  - Sickle cell anaemia with crisis [None]
  - Pancreatitis [None]

NARRATIVE: CASE EVENT DATE: 20240530
